FAERS Safety Report 8508171-2 (Version None)
Quarter: 2012Q2

REPORT INFORMATION
  Report Type: 
  Country: None (occurrence: None)
  Receive Date: 20120405
  Receipt Date: 20080520
  Transmission Date: 20120825
  Serious: Yes (Other)
  Sender: FDA-Public Use
  Company Number: PHEH2008US04540

PATIENT
  Age: 57 Year
  Sex: Female
  Weight: 59.9 kg

DRUGS (6)
  1. AVAPRO [Concomitant]
  2. PREVACID [Concomitant]
  3. RECLAST [Suspect]
     Indication: OSTEOPOROSIS
     Dosage: 5MG ONCE YEARLY, INTRAVENOUS
     Route: 042
     Dates: start: 20080507, end: 20080507
  4. SINGULAIR [Concomitant]
  5. ADVAIR HFA [Concomitant]
  6. CALCIUM WITH VITAMIN D (CALCIUM PHOSPHATE, CALCIUM SODIUM LACTATE, ERG [Concomitant]

REACTIONS (4)
  - PAIN IN EXTREMITY [None]
  - MUSCULOSKELETAL PAIN [None]
  - PAIN [None]
  - CHEST PAIN [None]
